FAERS Safety Report 4661549-X (Version None)
Quarter: 2005Q2

REPORT INFORMATION
  Report Type: 
  Country: None (occurrence: None)
  Receive Date: 20050502
  Receipt Date: 20050106
  Transmission Date: 20051028
  Serious: No
  Sender: FDA-Public Use
  Company Number: 200510221US

PATIENT
  Age: 20 Year
  Sex: Female

DRUGS (1)
  1. KETEK [Suspect]
     Dosage: ONCE
     Dates: start: 20050104, end: 20050104

REACTIONS (1)
  - HAEMATOCHEZIA [None]
